FAERS Safety Report 7513649-4 (Version None)
Quarter: 2011Q2

REPORT INFORMATION
  Report Type: 
  Country: None (occurrence: None)
  Receive Date: 20110531
  Receipt Date: 20110525
  Transmission Date: 20111010
  Serious: Yes (Hospitalization, Other)
  Sender: FDA-Public Use
  Company Number: JP-EISAI INC-E2090-01609-SPO-JP

PATIENT
  Age: 65 Year
  Sex: Female

DRUGS (5)
  1. BIOLOGICAL PREPARATION [Concomitant]
     Indication: RENAL CANCER
     Dosage: 6 IU (1,000,000S)/DAY
     Route: 048
     Dates: start: 20080101
  2. ZONISAMIDE [Suspect]
     Indication: EPILEPSY
     Route: 048
     Dates: start: 20100426
  3. BETAMETHASONE [Concomitant]
     Indication: BRAIN OEDEMA
     Route: 048
     Dates: start: 20100426
  4. MELOXICAM [Concomitant]
     Route: 048
     Dates: start: 20080101
  5. CIMETIDINE [Concomitant]
     Route: 048
     Dates: start: 20080101

REACTIONS (1)
  - TOXIC EPIDERMAL NECROLYSIS [None]
